FAERS Safety Report 12703652 (Version 5)
Quarter: 2018Q4

REPORT INFORMATION
  Report Type: Spontaneous
  Country: US (occurrence: US)
  Receive Date: 20160831
  Receipt Date: 20181001
  Transmission Date: 20190204
  Serious: No
  Sender: FDA-Public Use
  Company Number: US-PFIZER INC-2016411863

PATIENT
  Age: 54 Year
  Sex: Female
  Weight: 90 kg

DRUGS (1)
  1. XELJANZ XR [Suspect]
     Active Substance: TOFACITINIB CITRATE
     Indication: RHEUMATOID ARTHRITIS
     Dosage: 11 MG, DAILY
     Route: 048
     Dates: start: 20160429

REACTIONS (5)
  - Withdrawal syndrome [Unknown]
  - Cartilage injury [Unknown]
  - Infection [Not Recovered/Not Resolved]
  - Malaise [Unknown]
  - Drug effect incomplete [Unknown]

NARRATIVE: CASE EVENT DATE: 20160823
